FAERS Safety Report 10034269 (Version 1)
Quarter: 2014Q1

REPORT INFORMATION
  Report Type: Spontaneous
  Country: US (occurrence: None)
  Receive Date: 20140324
  Receipt Date: 20140324
  Transmission Date: 20141002
  Serious: Yes (Disabling)
  Sender: FDA-Public Use
  Company Number: None

PATIENT
  Age: 28 Year
  Sex: Male
  Weight: 117.94 kg

DRUGS (1)
  1. FAMCYCLOVIR [Suspect]
     Indication: GENITAL HERPES
     Route: 048
     Dates: start: 20140218, end: 20140220

REACTIONS (2)
  - Hypertension [None]
  - Anxiety [None]
